FAERS Safety Report 7465360-6 (Version None)
Quarter: 2011Q2

REPORT INFORMATION
  Report Type: 
  Country: None (occurrence: None)
  Receive Date: 20110509
  Receipt Date: 20110503
  Transmission Date: 20111010
  Serious: Yes (Hospitalization, Other)
  Sender: FDA-Public Use
  Company Number: IT-BRISTOL-MYERS SQUIBB COMPANY-15675523

PATIENT
  Age: 56 Year
  Sex: Male

DRUGS (5)
  1. BARACLUDE [Suspect]
     Indication: HEPATITIS B
     Dosage: ENTECAVIR WAS REINTRODUCED STOPPED ON 29APR11 RESTARTED ON 11MAR11
     Dates: start: 20101101
  2. RIFAXIMIN [Concomitant]
     Dosage: TABS
     Route: 048
  3. FUROSEMIDE [Concomitant]
     Dosage: CONCENTERATED SOLN FOR ENDOVENOUS INF
  4. PROPRANOLOL [Concomitant]
     Dosage: TABS
     Route: 048
  5. ESOMEPRAZOLE [Concomitant]
     Dosage: CONCENTRATED SOLN FOR ENDOVENOUS INF

REACTIONS (3)
  - ASCITES [None]
  - ENCEPHALOPATHY [None]
  - HAEMOLYTIC ANAEMIA [None]
